FAERS Safety Report 25032428 (Version 1)
Quarter: 2025Q1

REPORT INFORMATION
  Report Type: Spontaneous
  Country: US (occurrence: US)
  Receive Date: 20250303
  Receipt Date: 20250303
  Transmission Date: 20250409
  Serious: No
  Sender: EISAI
  Company Number: US-Eisai-EC-2025-183743

PATIENT
  Age: 77 Year
  Sex: Male
  Weight: 79 kg

DRUGS (1)
  1. LECANEMAB [Suspect]
     Active Substance: LECANEMAB
     Indication: Dementia Alzheimer^s type
     Dates: start: 20250114, end: 20250114

REACTIONS (8)
  - Gait disturbance [Recovered/Resolved]
  - Hallucination [Recovered/Resolved]
  - Dehydration [Unknown]
  - Nausea [Recovered/Resolved]
  - Vomiting [Unknown]
  - Weight decreased [Recovering/Resolving]
  - Dizziness [Unknown]
  - Asthenia [Recovering/Resolving]

NARRATIVE: CASE EVENT DATE: 20250101
